FAERS Safety Report 25753689 (Version 2)
Quarter: 2025Q4

REPORT INFORMATION
  Report Type: Spontaneous
  Country: EU (occurrence: EU)
  Receive Date: 20250903
  Receipt Date: 20251117
  Transmission Date: 20260118
  Serious: No
  Sender: NOVARTIS
  Company Number: EU-002147023-NVSC2025GR136085

PATIENT
  Age: 10 Month
  Sex: Male

DRUGS (3)
  1. ZOLGENSMA [Suspect]
     Active Substance: ONASEMNOGENE ABEPARVOVEC-XIOI
     Indication: Spinal muscular atrophy
     Dosage: UNK, ONCE/SINGLE (1.1 ? 1014 VECTOR GENOMES/KILOGRAM)
     Route: 042
  2. PIPERACILLIN AND TAZOBACTAM [Concomitant]
     Active Substance: PIPERACILLIN SODIUM\TAZOBACTAM SODIUM
     Indication: Product used for unknown indication
     Dosage: UNK (FOR FIVE DAYS ANTICIPATING CULTURES RESULTS)
     Route: 042
  3. GENTAMICIN [Concomitant]
     Active Substance: GENTAMICIN
     Indication: Product used for unknown indication
     Dosage: UNK (FOR FIVE DAYS ANTICIPATING CULTURES RESULTS)
     Route: 042

REACTIONS (2)
  - Therapeutic response decreased [Unknown]
  - Transaminases increased [Recovered/Resolved]
